FAERS Safety Report 10189953 (Version 1)
Quarter: 2014Q2

REPORT INFORMATION
  Report Type: Spontaneous
  Country: US (occurrence: US)
  Receive Date: 20140522
  Receipt Date: 20140522
  Transmission Date: 20141212
  Serious: No
  Sender: FDA-Public Use
  Company Number: US-ENDO PHARMACEUTICALS INC.-PRAN20130004

PATIENT
  Sex: Female
  Weight: 65.83 kg

DRUGS (1)
  1. PROPRANOLOL HCL TABLETS 20MG [Suspect]
     Indication: MIGRAINE PROPHYLAXIS
     Dosage: 10 MG IN AM AND 15 MG IN PM
     Route: 048

REACTIONS (1)
  - Feeling abnormal [Recovered/Resolved]
